FAERS Safety Report 7307739-9 (Version None)
Quarter: 2011Q1

REPORT INFORMATION
  Report Type: 
  Country: None (occurrence: None)
  Receive Date: 20110223
  Receipt Date: 20110210
  Transmission Date: 20110831
  Serious: Yes (Hospitalization)
  Sender: FDA-Public Use
  Company Number: FR-ELI_LILLY_AND_COMPANY-FR201102002704

PATIENT
  Sex: Female

DRUGS (7)
  1. OMEPRAZOLE [Concomitant]
  2. TAREG [Concomitant]
  3. ATHYMIL [Concomitant]
     Indication: MAJOR DEPRESSION
     Dosage: UNK, UNKNOWN
     Route: 048
  4. SELOKEN [Concomitant]
  5. ZYPREXA [Suspect]
     Indication: MANIA
     Route: 048
  6. ATHYMIL [Concomitant]
     Dosage: 10 MG, 2/D
     Route: 048
  7. VALIUM [Concomitant]
     Indication: ANXIETY
     Route: 048

REACTIONS (2)
  - DISTURBANCE IN ATTENTION [None]
  - EXTRAPYRAMIDAL DISORDER [None]
